FAERS Safety Report 17448476 (Version 1)
Quarter: 2020Q1

REPORT INFORMATION
  Report Type: Spontaneous
  Country: US (occurrence: US)
  Receive Date: 20200223
  Receipt Date: 20200223
  Transmission Date: 20200409
  Serious: No
  Sender: FDA-Public Use
  Company Number: US-ELI_LILLY_AND_COMPANY-US202002003485

PATIENT
  Age: 60 Year
  Sex: Female

DRUGS (13)
  1. HUMALOG [Suspect]
     Active Substance: INSULIN LISPRO
     Indication: TYPE 1 DIABETES MELLITUS
     Dosage: 3 U, BID (BEFORE BREAKFAST AND DINNER)
     Route: 058
  2. HUMALOG [Suspect]
     Active Substance: INSULIN LISPRO
     Dosage: 3 U, DAILY (AT LUNCH)
     Route: 058
  3. HUMALOG [Suspect]
     Active Substance: INSULIN LISPRO
     Dosage: 3 U, BID (BEFORE BREAKFAST AND DINNER)
     Route: 058
  4. HUMALOG [Suspect]
     Active Substance: INSULIN LISPRO
     Dosage: 3 U, BID (BEFORE BREAKFAST AND DINNER)
     Route: 058
  5. HUMALOG [Suspect]
     Active Substance: INSULIN LISPRO
     Dosage: 5 U, DAILY (AT LUNCH)
     Route: 058
     Dates: start: 201910
  6. SYNTHROID [Suspect]
     Active Substance: LEVOTHYROXINE SODIUM
     Indication: THYROID DISORDER
     Dosage: 88 U
  7. HUMALOG [Suspect]
     Active Substance: INSULIN LISPRO
     Dosage: 3 U, DAILY (AT LUNCH)
     Route: 058
  8. METFORMIN [Concomitant]
     Active Substance: METFORMIN HYDROCHLORIDE
     Indication: DIABETES MELLITUS
     Dosage: 500 MG, BID
  9. HUMALOG [Suspect]
     Active Substance: INSULIN LISPRO
     Dosage: 5 U, DAILY (AT LUNCH)
     Route: 058
     Dates: start: 201910
  10. SYNTHROID [Suspect]
     Active Substance: LEVOTHYROXINE SODIUM
     Dosage: 75 U
  11. LANTUS [Suspect]
     Active Substance: INSULIN GLARGINE
     Indication: DIABETES MELLITUS
     Dosage: 4 U, DAILY (NIGHT)
  12. IODINE. [Concomitant]
     Active Substance: IODINE
     Indication: THYROID DISORDER
  13. HUMALOG [Suspect]
     Active Substance: INSULIN LISPRO
     Indication: TYPE 1 DIABETES MELLITUS
     Dosage: 3 U, BID (BEFORE BREAKFAST AND DINNER)
     Route: 058

REACTIONS (5)
  - Product storage error [Unknown]
  - Weight decreased [Unknown]
  - Skin disorder [Recovering/Resolving]
  - Injection site haemorrhage [Unknown]
  - Blood glucose increased [Unknown]

NARRATIVE: CASE EVENT DATE: 20200122
